FAERS Safety Report 4983414-0 (Version None)
Quarter: 2006Q2

REPORT INFORMATION
  Report Type: 
  Country: None (occurrence: None)
  Receive Date: 20060426
  Receipt Date: 20050310
  Transmission Date: 20061013
  Serious: Yes (Other)
  Sender: FDA-Public Use
  Company Number: US-MERCK-0503USA02370

PATIENT
  Age: 40 Year
  Sex: Male
  Weight: 91 kg

DRUGS (3)
  1. VIOXX [Suspect]
     Indication: ARTHRALGIA
     Route: 048
     Dates: start: 20021018, end: 20031201
  2. VIOXX [Suspect]
     Indication: OSTEOARTHRITIS
     Route: 048
     Dates: start: 20021018, end: 20031201
  3. BEXTRA [Suspect]
     Route: 048
     Dates: start: 20031113, end: 20040701

REACTIONS (20)
  - ANGINA PECTORIS [None]
  - ASTHMA [None]
  - BLOOD CHOLESTEROL INCREASED [None]
  - BRONCHITIS [None]
  - CARDIAC FAILURE CONGESTIVE [None]
  - CHEST PAIN [None]
  - CHRONIC FATIGUE SYNDROME [None]
  - CORONARY ARTERY DISEASE [None]
  - DYSPNOEA [None]
  - EMOTIONAL DISTRESS [None]
  - HAEMORRHAGIC DISORDER [None]
  - HEART RATE IRREGULAR [None]
  - HODGKIN'S DISEASE [None]
  - HYPERTENSION [None]
  - INJURY [None]
  - MYOCARDIAL INFARCTION [None]
  - PAIN [None]
  - SLEEP APNOEA SYNDROME [None]
  - STRESS [None]
  - THROMBOSIS [None]
